FAERS Safety Report 21259559 (Version 2)
Quarter: 2022Q4

REPORT INFORMATION
  Report Type: Spontaneous
  Country: AU (occurrence: AU)
  Receive Date: 20220826
  Receipt Date: 20221209
  Transmission Date: 20230112
  Serious: Yes (Other)
  Sender: FDA-Public Use
  Company Number: AU-SEPTODONT-2022016603

PATIENT
  Age: 48 Year
  Sex: Male

DRUGS (4)
  1. EPINEPHRINE BITARTRATE\LIDOCAINE HYDROCHLORIDE [Suspect]
     Active Substance: EPINEPHRINE BITARTRATE\LIDOCAINE HYDROCHLORIDE
     Indication: Dental local anaesthesia
     Dosage: 2 CARTRIDGES
     Route: 004
     Dates: start: 20220810, end: 20220810
  2. Xylocaine Special adhesive Topical (100mg/g) [Concomitant]
     Indication: Product used for unknown indication
     Dates: start: 20220810, end: 20220810
  3. ESOMEPRAZOLE [Concomitant]
     Active Substance: ESOMEPRAZOLE
     Indication: Gastrooesophageal reflux disease
  4. Septoject XL, 30G, 25mm [Concomitant]
     Indication: Dental local anaesthesia
     Route: 004
     Dates: start: 20220810, end: 20220810

REACTIONS (4)
  - Seizure [Recovered/Resolved]
  - Hypoxia [Recovered/Resolved]
  - Dizziness [Recovered/Resolved]
  - Confusional state [Recovered/Resolved]

NARRATIVE: CASE EVENT DATE: 20220810
